FAERS Safety Report 8069750-2 (Version None)
Quarter: 2011Q4

REPORT INFORMATION
  Report Type: 
  Country: None (occurrence: None)
  Receive Date: 20111221
  Receipt Date: 20110923
  Transmission Date: 20120403
  Serious: Yes (Disabling)
  Sender: FDA-Public Use
  Company Number: PHEH2011US02690

PATIENT
  Age: 68 Year
  Sex: Male

DRUGS (1)
  1. EXJADE [Suspect]
     Dosage: 1000 MG, QD, ORAL
     Route: 048
     Dates: start: 20110705, end: 20110824

REACTIONS (6)
  - FATIGUE [None]
  - PYREXIA [None]
  - DIARRHOEA [None]
  - MALAISE [None]
  - DECREASED APPETITE [None]
  - DISTURBANCE IN ATTENTION [None]
